FAERS Safety Report 10574659 (Version 1)
Quarter: 2014Q4

REPORT INFORMATION
  Report Type: Report from Study
  Country: CA (occurrence: CA)
  Receive Date: 20141110
  Receipt Date: 20141110
  Transmission Date: 20150529
  Serious: Yes (Other)
  Sender: FDA-Public Use
  Company Number: CA-ROXANE LABORATORIES, INC.-2014-BI-52924GD

PATIENT

DRUGS (2)
  1. CODEINE [Suspect]
     Active Substance: CODEINE
     Indication: BREAKTHROUGH PAIN
     Dosage: 30-60 MG Q4H PRN
     Route: 048
  2. MORPHINE [Suspect]
     Active Substance: MORPHINE
     Indication: BREAKTHROUGH PAIN
     Dosage: 5-10 MG Q3H PRN
     Route: 042

REACTIONS (3)
  - Drug prescribing error [Unknown]
  - Overdose [Unknown]
  - Toxicity to various agents [Unknown]
